FAERS Safety Report 6076355-1 (Version None)
Quarter: 2009Q1

REPORT INFORMATION
  Report Type: 
  Country: None (occurrence: None)
  Receive Date: 20090211
  Receipt Date: 20090203
  Transmission Date: 20090719
  Serious: Yes (Hospitalization)
  Sender: FDA-Public Use
  Company Number: TPA2008A01432

PATIENT
  Age: 79 Year
  Sex: Male
  Weight: 113.3993 kg

DRUGS (14)
  1. ACTOS [Suspect]
     Indication: TYPE 2 DIABETES MELLITUS
     Dosage: 45 MG, 1 IN 1 D, PER ORAL, 15 MG, 1 IN 1 D, PER ORAL
     Route: 048
     Dates: start: 20070814
  2. ACTOS [Suspect]
     Indication: TYPE 2 DIABETES MELLITUS
     Dosage: 45 MG, 1 IN 1 D, PER ORAL, 15 MG, 1 IN 1 D, PER ORAL
     Route: 048
     Dates: start: 20080723
  3. STARLIX (NATEGLINIDE) (TABLETS) [Concomitant]
  4. INSULIN (INSULIN) [Concomitant]
  5. COUMADIN [Concomitant]
  6. TOPROL-XL [Concomitant]
  7. DIGOXIN [Concomitant]
  8. NEXIUM [Concomitant]
  9. MONOPRIL HCT HYDROCHLOROTHIAZIDE, FOSINOPRIL SODIUM) [Concomitant]
  10. REGLAN [Concomitant]
  11. ZOCOR [Concomitant]
  12. IRON (IRON) [Concomitant]
  13. PRILOSEC (OMEPRAZOLE) (SUSTAINED-RELEASE CAPSULE) [Concomitant]
  14. ASPIRIN [Concomitant]

REACTIONS (8)
  - AORTIC ANEURYSM [None]
  - AORTIC STENOSIS [None]
  - ATRIAL FIBRILLATION [None]
  - BLOOD GLUCOSE INCREASED [None]
  - DIZZINESS [None]
  - JOINT SWELLING [None]
  - PALPITATIONS [None]
  - VASCULAR GRAFT [None]
